FAERS Safety Report 8461801-6 (Version None)
Quarter: 2012Q2

REPORT INFORMATION
  Report Type: 
  Country: None (occurrence: None)
  Receive Date: 20120618
  Receipt Date: 20120601
  Transmission Date: 20120825
  Serious: Yes (Other)
  Sender: FDA-Public Use
  Company Number: 2012MA006853

PATIENT
  Sex: Male

DRUGS (2)
  1. NYSTATIN [Suspect]
     Dosage: TOP
     Route: 061
  2. WARFARIN SODIUM [Suspect]
     Dosage: PO
     Route: 048

REACTIONS (2)
  - HAEMORRHAGE [None]
  - INTERNATIONAL NORMALISED RATIO INCREASED [None]
